FAERS Safety Report 9116056 (Version 1)
Quarter: 2013Q1

REPORT INFORMATION
  Report Type: Spontaneous
  Country: US (occurrence: US)
  Receive Date: 20130225
  Receipt Date: 20130225
  Transmission Date: 20140127
  Serious: Yes (Death, Other)
  Sender: FDA-Public Use
  Company Number: US-ASTRAZENECA-2013SE11722

PATIENT
  Age: 29 Year
  Sex: Male

DRUGS (1)
  1. CAPRELSA [Suspect]
     Indication: THYROID CANCER
     Route: 048

REACTIONS (5)
  - Malignant neoplasm progression [Fatal]
  - Hepatic lesion [Unknown]
  - Abdominal distension [Unknown]
  - Rash [Unknown]
  - Diarrhoea [Unknown]
